FAERS Safety Report 7934989-0 (Version None)
Quarter: 2011Q4

REPORT INFORMATION
  Report Type: 
  Country: None (occurrence: None)
  Receive Date: 20111122
  Receipt Date: 20111116
  Transmission Date: 20120403
  Serious: Yes (Other)
  Sender: FDA-Public Use
  Company Number: SE-JNJFOC-20111104961

PATIENT
  Sex: Male

DRUGS (4)
  1. NICOTINE [Suspect]
     Route: 065
  2. NICORETTE [Suspect]
     Indication: PRODUCT USED FOR UNKNOWN INDICATION
     Dosage: ^SINCE A LONG TIME AGO^
     Route: 048
  3. NICOTINE [Suspect]
     Indication: SMOKING CESSATION THERAPY
     Dosage: ^FOR ABOUT 20 YEARS^
     Route: 065
  4. NICORETTE [Suspect]
     Indication: SMOKING CESSATION THERAPY
     Dosage: ^SINCE A LONG TIME AGO^
     Route: 048

REACTIONS (2)
  - INCORRECT DRUG ADMINISTRATION DURATION [None]
  - METASTATIC RENAL CELL CARCINOMA [None]
